FAERS Safety Report 16907818 (Version 2)
Quarter: 2020Q3

REPORT INFORMATION
  Report Type: Report from Study
  Country: DE (occurrence: DE)
  Receive Date: 20191011
  Receipt Date: 20191031
  Transmission Date: 20201104
  Serious: Yes (Hospitalization, Other)
  Sender: FDA-Public Use
  Company Number: DE-ROCHE-2437470

PATIENT
  Age: 71 Year
  Sex: Male

DRUGS (1)
  1. POLATUZUMAB VEDOTIN. [Suspect]
     Active Substance: POLATUZUMAB VEDOTIN
     Indication: B-CELL LYMPHOMA
     Dosage: ACCORDING 194.4 MG
     Route: 042
     Dates: start: 20190723

REACTIONS (5)
  - Hyperhidrosis [Recovered/Resolved]
  - Febrile neutropenia [Unknown]
  - Headache [Recovered/Resolved]
  - Pyrexia [Unknown]
  - Cytopenia [Unknown]

NARRATIVE: CASE EVENT DATE: 20190807
